FAERS Safety Report 11474028 (Version 1)
Quarter: 2015Q3

REPORT INFORMATION
  Report Type: Spontaneous
  Country: US (occurrence: None)
  Receive Date: 20150908
  Receipt Date: 20150908
  Transmission Date: 20151125
  Serious: Yes (Hospitalization, Disabling)
  Sender: FDA-Public Use
  Company Number: None

PATIENT
  Age: 46 Year
  Sex: Female
  Weight: 45.36 kg

DRUGS (10)
  1. SERTRALINE [Concomitant]
     Active Substance: SERTRALINE HYDROCHLORIDE
  2. PHENTOIN [Concomitant]
  3. VITAMIN D [Concomitant]
     Active Substance: CHOLECALCIFEROL
  4. PROGRESTERONE [Concomitant]
  5. GABAPENTIN. [Concomitant]
     Active Substance: GABAPENTIN
  6. TECFIDERA [Concomitant]
     Active Substance: DIMETHYL FUMARATE
  7. GILENYA [Suspect]
     Active Substance: FINGOLIMOD HYDROCHLORIDE
     Indication: MULTIPLE SCLEROSIS
     Dosage: 1 PILL
     Route: 048
     Dates: start: 20110214, end: 20130226
  8. PREGNENOLONE [Concomitant]
     Active Substance: PREGNENOLONE
  9. TOPIRAMATE. [Concomitant]
     Active Substance: TOPIRAMATE
  10. PEPCID [Concomitant]
     Active Substance: FAMOTIDINE

REACTIONS (4)
  - Speech disorder [None]
  - Reading disorder [None]
  - Seizure [None]
  - Cerebral disorder [None]

NARRATIVE: CASE EVENT DATE: 20130226
